FAERS Safety Report 8988366 (Version 1)
Quarter: 2012Q4

REPORT INFORMATION
  Report Type: Spontaneous
  Country: US (occurrence: None)
  Receive Date: 20121220
  Receipt Date: 20121220
  Transmission Date: 20130627
  Serious: Yes (Other)
  Sender: FDA-Public Use
  Company Number: None

PATIENT
  Age: 40 Year
  Sex: Female
  Weight: 64.41 kg

DRUGS (1)
  1. SAMBUCUS NIGRA FLOWERING TOP\ZINC GLUCONATE\ZINC OXIDE [Suspect]
     Dosage: 1 tablet  2   po
     Route: 048
     Dates: start: 20121217, end: 20121217

REACTIONS (1)
  - Ageusia [None]
